FAERS Safety Report 18571086 (Version 1)
Quarter: 2020Q4

REPORT INFORMATION
  Report Type: Spontaneous
  Country: US (occurrence: US)
  Receive Date: 20201202
  Receipt Date: 20201202
  Transmission Date: 20210114
  Serious: No
  Sender: FDA-Public Use
  Company Number: US-NOVEN PHARMACEUTICALS, INC.-US2020000113

PATIENT

DRUGS (1)
  1. MINIVELLE [Suspect]
     Active Substance: ESTRADIOL
     Indication: PRODUCT USED FOR UNKNOWN INDICATION
     Dosage: 0.1 MG, UNKNOWN
     Route: 062

REACTIONS (5)
  - Therapeutic product ineffective [Unknown]
  - Vulvovaginal dryness [Recovering/Resolving]
  - Fatigue [Recovering/Resolving]
  - Product adhesion issue [Unknown]
  - Product quality issue [Unknown]

NARRATIVE: CASE EVENT DATE: 202002
